FAERS Safety Report 15739042 (Version 1)
Quarter: 2018Q4

REPORT INFORMATION
  Report Type: Report from Study
  Country: US (occurrence: US)
  Receive Date: 20181219
  Receipt Date: 20181219
  Transmission Date: 20190205
  Serious: Yes (Death)
  Sender: FDA-Public Use
  Company Number: US-ASTRAZENECA-2018SF00583

PATIENT
  Sex: Female

DRUGS (1)
  1. LYNPARZA [Suspect]
     Active Substance: OLAPARIB
     Indication: OVARIAN CANCER
     Route: 048
     Dates: start: 20180710

REACTIONS (5)
  - Dizziness [Unknown]
  - Death [Fatal]
  - Fatigue [Unknown]
  - Abdominal pain upper [Unknown]
  - Abdominal distension [Unknown]
